FAERS Safety Report 14691917 (Version 1)
Quarter: 2018Q1

REPORT INFORMATION
  Report Type: Spontaneous
  Country: DK (occurrence: DK)
  Receive Date: 20180329
  Receipt Date: 20180329
  Transmission Date: 20180509
  Serious: Yes (Hospitalization)
  Sender: FDA-Public Use
  Company Number: DK-CIPLA LTD.-2018DK12592

PATIENT

DRUGS (13)
  1. TRAMADOL. [Concomitant]
     Active Substance: TRAMADOL
     Indication: PAIN
     Dosage: 400 MG, STYRKE: 50 MG
     Route: 048
     Dates: start: 20170516
  2. LOSARSTAD COMP [Concomitant]
     Active Substance: HYDROCHLOROTHIAZIDE\LOSARTAN POTASSIUM
     Indication: HYPERTENSION
     Dosage: 1 DF, STYRKE: 100+12,5 MG
     Route: 048
     Dates: start: 20160414
  3. PARACETAMOL [Concomitant]
     Active Substance: ACETAMINOPHEN
     Indication: PAIN
     Dosage: 4000 MG, STYRKE: 500 MG
     Route: 048
  4. GABAPENTIN. [Concomitant]
     Active Substance: GABAPENTIN
     Indication: NEURALGIA
     Dosage: 900 MG, STYRKE: 300 MG
     Route: 048
  5. PREDNISOLONE. [Concomitant]
     Active Substance: PREDNISOLONE
     Indication: SUPPLEMENTATION THERAPY
     Dosage: 87.5 MG, DOSIS: 3 TABLETTER DAGLIGT X 25 MG + 2,5 TABLETTER DAGLIGT X 5 MG, STYRKE: 5 + 25 MG
     Route: 048
  6. CARVEDILOL. [Concomitant]
     Active Substance: CARVEDILOL
     Indication: HYPERTENSION
     Dosage: 50 MG, STYRKE: 25 MG
     Route: 048
     Dates: start: 20161222
  7. DOMPERIDONE [Concomitant]
     Active Substance: DOMPERIDONE
     Indication: NAUSEA
     Dosage: 20 MG, DOSIS: 2 TABLETTER EFTER BEHOV, HOJST 3 GANGE DAGLIG, STYRKE: 10 MG ; AS NECESSARY
     Route: 048
     Dates: start: 20150923
  8. XGEVA [Suspect]
     Active Substance: DENOSUMAB
     Indication: METASTASES TO BONE
     Dosage: 120 MG, STYRKE: 120 MG
     Route: 065
     Dates: start: 20151102, end: 20160301
  9. FUROSEMIDE. [Concomitant]
     Active Substance: FUROSEMIDE
     Indication: DIURETIC THERAPY
     Dosage: 40 MG, STYRKE: 40 MG
     Route: 048
  10. PANTOPRAZOLE [Concomitant]
     Active Substance: PANTOPRAZOLE
     Indication: GASTROOESOPHAGEAL REFLUX DISEASE
     Dosage: 20 MG, STYRKE: 20 MG
     Route: 048
     Dates: start: 20151209
  11. AMLODIPINE [Concomitant]
     Active Substance: AMLODIPINE BESYLATE
     Indication: HYPERTENSION
     Dosage: 10 MG, STYRKE: 10 MG
     Route: 048
     Dates: start: 20160414
  12. ZOLEDRONIC ACID [Suspect]
     Active Substance: ZOLEDRONIC ACID
     Indication: METASTASES TO BONE
     Dosage: UNK
     Route: 065
     Dates: start: 20150914, end: 20151102
  13. UNIKALK OSTEO [Concomitant]
     Indication: MINERAL SUPPLEMENTATION
     Dosage: 2 DF, STYRKE: 400 MG CA + 19 ?G D-VIT
     Route: 048
     Dates: start: 20160531

REACTIONS (2)
  - Jaw operation [Recovered/Resolved]
  - Osteonecrosis of jaw [Not Recovered/Not Resolved]

NARRATIVE: CASE EVENT DATE: 20171028
